FAERS Safety Report 11813774 (Version 1)
Quarter: 2015Q4

REPORT INFORMATION
  Report Type: Spontaneous
  Country: US (occurrence: None)
  Receive Date: 20151208
  Receipt Date: 20151208
  Transmission Date: 20160305
  Serious: No
  Sender: FDA-Public Use
  Company Number: None

PATIENT
  Age: 59 Year
  Sex: Female

DRUGS (1)
  1. ACYCLOVIR 400 MG [Suspect]
     Active Substance: ACYCLOVIR

REACTIONS (4)
  - Product coating issue [None]
  - Choking [None]
  - Foreign body [None]
  - Product solubility abnormal [None]

NARRATIVE: CASE EVENT DATE: 20150930
